FAERS Safety Report 12569025 (Version 2)
Quarter: 2016Q3

REPORT INFORMATION
  Report Type: Spontaneous
  Country: GB (occurrence: GB)
  Receive Date: 20160719
  Receipt Date: 20160804
  Transmission Date: 20161109
  Serious: Yes (Other)
  Sender: FDA-Public Use
  Company Number: GB-AUROBINDO-AUR-APL-2016-08888

PATIENT

DRUGS (11)
  1. PAROXETINE HYDROCHLORIDE. [Suspect]
     Active Substance: PAROXETINE HYDROCHLORIDE
     Indication: DEPRESSION
     Dosage: 20 DF, ONCE A DAY
     Route: 048
     Dates: start: 20050629, end: 20051118
  2. PAROXETINE TABLETS 20 MG [Suspect]
     Active Substance: PAROXETINE HYDROCHLORIDE
     Dosage: UNK
     Route: 065
     Dates: start: 20010227
  3. PAROXETINE TABLETS 20 MG [Suspect]
     Active Substance: PAROXETINE HYDROCHLORIDE
     Indication: DEPRESSION
     Dosage: 30 MG, QD
     Route: 048
     Dates: start: 20070924, end: 20130325
  4. PAROXETINE HYDROCHLORIDE. [Suspect]
     Active Substance: PAROXETINE HYDROCHLORIDE
     Dosage: 10 DF, ONCE A DAY
     Route: 048
     Dates: start: 20020620, end: 20051103
  5. PAROXETINE TABLETS 20 MG [Suspect]
     Active Substance: PAROXETINE HYDROCHLORIDE
     Indication: PANIC ATTACK
     Dosage: 20 MG, QD
     Route: 065
     Dates: start: 199910, end: 20160411
  6. SEROXAT [Suspect]
     Active Substance: PAROXETINE HYDROCHLORIDE
     Indication: DEPRESSION
     Dosage: 30 MG, QD
     Route: 048
     Dates: start: 20080320
  7. PAXIL [Suspect]
     Active Substance: PAROXETINE HYDROCHLORIDE
     Indication: DEPRESSION
     Dosage: 20 MG, DAILY
     Route: 065
     Dates: start: 19990910, end: 20051021
  8. PAXIL [Suspect]
     Active Substance: PAROXETINE HYDROCHLORIDE
     Dosage: 30 MG, DAILY
     Route: 065
     Dates: start: 20080320
  9. DIAZEPAM. [Concomitant]
     Active Substance: DIAZEPAM
     Indication: PRODUCT USED FOR UNKNOWN INDICATION
     Dosage: 5 MG, PRN
     Route: 065
     Dates: start: 20080327
  10. PAROXETINE TABLETS 20 MG [Suspect]
     Active Substance: PAROXETINE HYDROCHLORIDE
     Dosage: 40 MG, QD
     Route: 048
     Dates: start: 20101011, end: 20150128
  11. PAROXETINE TABLETS 20 MG [Suspect]
     Active Substance: PAROXETINE HYDROCHLORIDE
     Dosage: 10 MG, DAILY
     Route: 048
     Dates: start: 20090616, end: 20130325

REACTIONS (13)
  - Memory impairment [Unknown]
  - Confusional state [Unknown]
  - Sleep disorder [Unknown]
  - Lethargy [Unknown]
  - Tremor [Unknown]
  - Hyperhidrosis [Unknown]
  - Disturbance in attention [Unknown]
  - Weight increased [Unknown]
  - Obsessive thoughts [Unknown]
  - Drug withdrawal syndrome [Unknown]
  - Fatigue [Unknown]
  - Agitation [Unknown]
  - Suicidal ideation [Unknown]

NARRATIVE: CASE EVENT DATE: 200509
